FAERS Safety Report 11463885 (Version 2)
Quarter: 2015Q4

REPORT INFORMATION
  Report Type: Spontaneous
  Country: US (occurrence: US)
  Receive Date: 20150831
  Receipt Date: 20151104
  Transmission Date: 20160304
  Serious: No
  Sender: FDA-Public Use
  Company Number: US-ELI_LILLY_AND_COMPANY-US201012005865

PATIENT
  Age: 63 Year
  Sex: Female

DRUGS (12)
  1. PAXIL [Concomitant]
     Active Substance: PAROXETINE HYDROCHLORIDE
  2. FORTEO [Suspect]
     Active Substance: TERIPARATIDE
     Dosage: 20 UG, QD
  3. CYMBALTA [Suspect]
     Active Substance: DULOXETINE HYDROCHLORIDE
  4. COLACE [Concomitant]
     Active Substance: DOCUSATE SODIUM
  5. FORTEO [Suspect]
     Active Substance: TERIPARATIDE
     Indication: OSTEOPOROSIS
     Dosage: 20 UG, DAILY (1/D)
     Dates: start: 20101201, end: 201012
  6. NEURONTIN [Concomitant]
     Active Substance: GABAPENTIN
  7. FLECTOR                            /00372302/ [Concomitant]
     Active Substance: DICLOFENAC SODIUM
  8. FORTEO [Suspect]
     Active Substance: TERIPARATIDE
     Dosage: 20 UG, DAILY (1/D)
     Dates: start: 20101216
  9. TOPAMAX [Concomitant]
     Active Substance: TOPIRAMATE
  10. LORATADINE. [Concomitant]
     Active Substance: LORATADINE
  11. SYNTHROID [Concomitant]
     Active Substance: LEVOTHYROXINE SODIUM
  12. LYRICA [Concomitant]
     Active Substance: PREGABALIN

REACTIONS (8)
  - Constipation [Recovering/Resolving]
  - Gait disturbance [Unknown]
  - Injection site swelling [Unknown]
  - Injection site warmth [Unknown]
  - Muscle spasms [Unknown]
  - Plantar fasciitis [Unknown]
  - Injection site pain [Recovering/Resolving]
  - Fibromyalgia [Unknown]

NARRATIVE: CASE EVENT DATE: 201012
